FAERS Safety Report 6453590-1 (Version None)
Quarter: 2009Q4

REPORT INFORMATION
  Report Type: 
  Country: None (occurrence: None)
  Receive Date: 20091124
  Receipt Date: 20091119
  Transmission Date: 20100525
  Serious: Yes (Death, Hospitalization)
  Sender: FDA-Public Use
  Company Number: US-CELGENEUS-163-21880-09111508

PATIENT
  Sex: Female
  Weight: 72.3 kg

DRUGS (2)
  1. REVLIMID [Suspect]
     Route: 048
     Dates: start: 20090918, end: 20091111
  2. COUMADIN [Suspect]
     Indication: DRUG USE FOR UNKNOWN INDICATION
     Route: 065

REACTIONS (4)
  - BACK PAIN [None]
  - DISEASE PROGRESSION [None]
  - SKIN INDURATION [None]
  - SMALL INTESTINAL OBSTRUCTION [None]
